FAERS Safety Report 18569599 (Version 1)
Quarter: 2020Q4

REPORT INFORMATION
  Report Type: Spontaneous
  Country: US (occurrence: US)
  Receive Date: 20201201
  Receipt Date: 20201201
  Transmission Date: 20210114
  Serious: Yes (Hospitalization)
  Sender: FDA-Public Use
  Company Number: None

PATIENT
  Age: 71 Year
  Sex: Female

DRUGS (4)
  1. ACRETIN [Concomitant]
  2. CYCLOSPORINE MODIFIED [Concomitant]
     Active Substance: CYCLOSPORINE
  3. ZORTRESS [Suspect]
     Active Substance: EVEROLIMUS
     Indication: SQUAMOUS CELL CARCINOMA
     Route: 048
     Dates: start: 20160519
  4. VIT D [Concomitant]
     Active Substance: VITAMIN D NOS

REACTIONS (2)
  - Cellulitis [None]
  - Peripheral swelling [None]

NARRATIVE: CASE EVENT DATE: 20201116
